FAERS Safety Report 8270591-1 (Version None)
Quarter: 2012Q2

REPORT INFORMATION
  Report Type: 
  Country: None (occurrence: None)
  Receive Date: 20120405
  Receipt Date: 20120326
  Transmission Date: 20120825
  Serious: Yes (Life-Threatening, Hospitalization)
  Sender: FDA-Public Use
  Company Number: NGX_00594_2011

PATIENT
  Sex: Male

DRUGS (9)
  1. OMEPRAZOL /00661203/ [Concomitant]
  2. TRUVADA [Concomitant]
  3. DIPIPERON [Concomitant]
  4. QUTENZA [Suspect]
     Indication: POLYNEUROPATHY
     Dosage: (2 DF, [PATCH, ON THE FEET] TOPICAL)
     Route: 061
     Dates: start: 20110801, end: 20110801
  5. QUTENZA [Suspect]
     Indication: PAIN
     Dosage: (2 DF, [PATCH, ON THE FEET] TOPICAL)
     Route: 061
     Dates: start: 20110801, end: 20110801
  6. KALETRA [Concomitant]
  7. LYRICA [Concomitant]
  8. LIDOCAINE [Concomitant]
  9. IBUPROFEN [Concomitant]

REACTIONS (1)
  - GUILLAIN-BARRE SYNDROME [None]
